FAERS Safety Report 14809071 (Version 2)
Quarter: 2018Q2

REPORT INFORMATION
  Report Type: Spontaneous
  Country: US (occurrence: US)
  Receive Date: 20180425
  Receipt Date: 20180515
  Transmission Date: 20180711
  Serious: Yes (Hospitalization)
  Sender: FDA-Public Use
  Company Number: US-ALLERGAN-1822502US

PATIENT
  Age: 25 Year
  Sex: Female
  Weight: 95.69 kg

DRUGS (1)
  1. LILETTA [Suspect]
     Active Substance: LEVONORGESTREL
     Indication: CONTRACEPTION
     Dosage: 52 MG
     Route: 015
     Dates: start: 20180321

REACTIONS (6)
  - Pain [Recovered/Resolved]
  - Heart rate increased [Recovered/Resolved]
  - Ovarian abscess [Recovered/Resolved]
  - Pelvic inflammatory disease [Recovered/Resolved]
  - Swelling [Recovered/Resolved]
  - Gait disturbance [Recovered/Resolved]

NARRATIVE: CASE EVENT DATE: 201803
